FAERS Safety Report 6896907-6 (Version None)
Quarter: 2010Q3

REPORT INFORMATION
  Report Type: 
  Country: None (occurrence: None)
  Receive Date: 20100802
  Receipt Date: 20070220
  Transmission Date: 20110219
  Serious: No
  Sender: FDA-Public Use
  Company Number: US-PFIZER INC-2007013985

PATIENT
  Sex: Female
  Weight: 63.5 kg

DRUGS (7)
  1. LYRICA [Suspect]
     Indication: INTERVERTEBRAL DISC PROTRUSION
     Dosage: 1 EVERY 3 DAYS
     Dates: start: 20070213
  2. MAXZIDE [Concomitant]
  3. SYNTHROID [Concomitant]
  4. PROZAC [Concomitant]
  5. CYCLOBENZAPRINE [Concomitant]
  6. NEXIUM [Concomitant]
  7. GLUCOPHAGE [Concomitant]

REACTIONS (1)
  - DYSPEPSIA [None]
